FAERS Safety Report 11870495 (Version 1)
Quarter: 2015Q4

REPORT INFORMATION
  Report Type: Spontaneous
  Country: US (occurrence: None)
  Receive Date: 20151224
  Receipt Date: 20151224
  Transmission Date: 20160305
  Serious: Yes (Hospitalization)
  Sender: FDA-Public Use
  Company Number: None

PATIENT
  Age: 60 Year
  Sex: Male

DRUGS (2)
  1. LISINOPRIL. [Suspect]
     Active Substance: LISINOPRIL
     Indication: HYPERTENSION
     Dates: start: 20150418, end: 20151218
  2. LISINOPRIL. [Suspect]
     Active Substance: LISINOPRIL
     Indication: SINUSITIS
     Dates: start: 20150418, end: 20151218

REACTIONS (1)
  - Angioedema [None]

NARRATIVE: CASE EVENT DATE: 20151218
